FAERS Safety Report 24960622 (Version 1)
Quarter: 2025Q1

REPORT INFORMATION
  Report Type: Spontaneous
  Country: ES (occurrence: ES)
  Receive Date: 20250212
  Receipt Date: 20250212
  Transmission Date: 20250408
  Serious: Yes (Hospitalization, Other)
  Sender: PFIZER
  Company Number: None

PATIENT
  Age: 56 Year
  Sex: Male

DRUGS (2)
  1. CARBOPLATIN [Interacting]
     Active Substance: CARBOPLATIN
     Indication: Lung adenocarcinoma
     Route: 042
     Dates: start: 20240618
  2. ETOPOSIDE [Interacting]
     Active Substance: ETOPOSIDE
     Indication: Lung adenocarcinoma
     Route: 042
     Dates: start: 20240618

REACTIONS (3)
  - Agranulocytosis [Recovering/Resolving]
  - Pancytopenia [Recovering/Resolving]
  - Drug interaction [Unknown]

NARRATIVE: CASE EVENT DATE: 20240628
